FAERS Safety Report 17640943 (Version 3)
Quarter: 2020Q2

REPORT INFORMATION
  Report Type: Spontaneous
  Country: NL (occurrence: NL)
  Receive Date: 20200408
  Receipt Date: 20200611
  Transmission Date: 20200713
  Serious: Yes (Hospitalization, Other)
  Sender: FDA-Public Use
  Company Number: NL-AUROBINDO-AUR-APL-2020-016933

PATIENT
  Age: 76 Year
  Sex: Male

DRUGS (4)
  1. METOPROLOL. [Suspect]
     Active Substance: METOPROLOL
     Indication: CORONARY ARTERY DISEASE
     Dosage: UNK
     Route: 065
  2. METOPROLOL. [Suspect]
     Active Substance: METOPROLOL
     Dosage: 100 MILLIGRAM, ONCE A DAY
     Route: 048
     Dates: start: 20191129, end: 20200110
  3. METOPROLOL. [Suspect]
     Active Substance: METOPROLOL
     Dosage: 50 MILLIGRAM, ONCE A DAY
     Route: 048
     Dates: start: 20140319, end: 20200120
  4. UMECLIDINIUM BROMIDE [Suspect]
     Active Substance: UMECLIDINIUM BROMIDE
     Indication: CHRONIC OBSTRUCTIVE PULMONARY DISEASE
     Dosage: UNK (30 DOSES PER INHALER)
     Route: 055
     Dates: start: 20160930, end: 20170210

REACTIONS (2)
  - Atrioventricular block [Recovered/Resolved]
  - Arrhythmia [Recovered/Resolved]

NARRATIVE: CASE EVENT DATE: 20200110
